FAERS Safety Report 8276395-8 (Version None)
Quarter: 2012Q2

REPORT INFORMATION
  Report Type: 
  Country: None (occurrence: None)
  Receive Date: 20120412
  Receipt Date: 20120404
  Transmission Date: 20120825
  Serious: Yes (Hospitalization, Other)
  Sender: FDA-Public Use
  Company Number: BR-JNJFOC-20120402857

PATIENT
  Age: 39 Year
  Sex: Female
  Weight: 54 kg

DRUGS (4)
  1. DURAGESIC-100 [Suspect]
     Indication: MUSCLE SPASMS
     Route: 062
     Dates: start: 20100101, end: 20100101
  2. DURAGESIC-100 [Suspect]
     Indication: NEURALGIA
     Route: 062
     Dates: start: 20100101, end: 20100101
  3. TRAMADOL HYDROCHLORIDE [Concomitant]
     Indication: MUSCLE SPASMS
     Route: 048
     Dates: start: 20070101
  4. TRAMADOL HYDROCHLORIDE [Concomitant]
     Indication: NEURALGIA
     Route: 048
     Dates: start: 20070101

REACTIONS (3)
  - RESPIRATORY DEPRESSION [None]
  - DYSPNOEA [None]
  - PALPITATIONS [None]
